FAERS Safety Report 7593697-9 (Version None)
Quarter: 2011Q3

REPORT INFORMATION
  Report Type: 
  Country: None (occurrence: None)
  Receive Date: 20110706
  Receipt Date: 20110622
  Transmission Date: 20111222
  Serious: Yes (Hospitalization)
  Sender: FDA-Public Use
  Company Number: PHHY2011JP55900

PATIENT
  Age: 70 Year
  Sex: Male

DRUGS (2)
  1. VALPROIC ACID [Concomitant]
     Route: 048
  2. CARBAMAZEPINE [Suspect]
     Indication: GRAND MAL CONVULSION
     Route: 048

REACTIONS (3)
  - RASH [None]
  - INFECTION SUSCEPTIBILITY INCREASED [None]
  - LIVER DISORDER [None]
